FAERS Safety Report 8122350-8 (Version None)
Quarter: 2012Q1

REPORT INFORMATION
  Report Type: 
  Country: None (occurrence: None)
  Receive Date: 20120208
  Receipt Date: 20120130
  Transmission Date: 20120608
  Serious: Yes (Other)
  Sender: FDA-Public Use
  Company Number: US-JNJFOC-20120200381

PATIENT
  Sex: Male
  Weight: 79.38 kg

DRUGS (5)
  1. REMICADE [Suspect]
     Dosage: RECEIVED FOUR INFUSION PRIOR TO BASELINE
     Route: 042
     Dates: start: 20020711
  2. REMICADE [Suspect]
     Route: 042
     Dates: start: 20020919
  3. REMICADE [Suspect]
     Route: 042
     Dates: start: 20021202
  4. REMICADE [Suspect]
     Indication: CROHN'S DISEASE
     Route: 042
     Dates: start: 20070703
  5. REMICADE [Suspect]
     Dosage: 21 INFUSIONS
     Route: 042
     Dates: start: 20030203

REACTIONS (1)
  - SQUAMOUS CELL CARCINOMA [None]
